FAERS Safety Report 8215314-7 (Version None)
Quarter: 2012Q1

REPORT INFORMATION
  Report Type: 
  Country: None (occurrence: None)
  Receive Date: 20120316
  Receipt Date: 20120308
  Transmission Date: 20120608
  Serious: Yes (Life-Threatening)
  Sender: FDA-Public Use
  Company Number: FR-ALLERGAN-1203405US

PATIENT
  Age: 79 Year
  Sex: Female

DRUGS (9)
  1. INSULIN [Concomitant]
  2. SIMVASTATIN [Concomitant]
  3. SUFENTANIL CITRATE [Suspect]
     Indication: INDUCTION OF ANAESTHESIA
     Dosage: UNK
     Route: 042
     Dates: start: 20120131, end: 20120131
  4. IPERTEN [Concomitant]
  5. PROPOFOL [Suspect]
     Indication: INDUCTION OF ANAESTHESIA
     Dosage: UNK
     Route: 042
     Dates: start: 20120131, end: 20120131
  6. BOTOX [Suspect]
     Indication: HYPERTONIC BLADDER
     Dosage: 200 UNITS, SINGLE
     Dates: start: 20120131, end: 20120131
  7. ACUPAN [Suspect]
     Indication: PRODUCT USED FOR UNKNOWN INDICATION
  8. METFORMIN HYDROCHLORIDE [Concomitant]
  9. IRBESARTAN [Concomitant]

REACTIONS (3)
  - ANAPHYLACTOID SHOCK [None]
  - GENERALISED ERYTHEMA [None]
  - PRURITUS [None]
